FAERS Safety Report 23149072 (Version 1)
Quarter: 2023Q4

REPORT INFORMATION
  Report Type: Spontaneous
  Country: US (occurrence: US)
  Receive Date: 20231106
  Receipt Date: 20231106
  Transmission Date: 20240110
  Serious: No
  Sender: FDA-Public Use
  Company Number: US-Emergent Biosolutions-23000462

PATIENT
  Age: 33 Year
  Sex: Male

DRUGS (4)
  1. CNJ-016 [Suspect]
     Active Substance: HUMAN VACCINIA VIRUS IMMUNE GLOBULIN
     Indication: Monkeypox
     Dosage: UNK
     Route: 042
  2. TECOVIRIMAT [Concomitant]
     Active Substance: TECOVIRIMAT
     Indication: Monkeypox
     Dosage: UNK
     Route: 048
  3. TECOVIRIMAT [Concomitant]
     Active Substance: TECOVIRIMAT
     Dosage: RESTARTED
     Route: 048
  4. TECOVIRIMAT [Concomitant]
     Active Substance: TECOVIRIMAT
     Dosage: UNK
     Route: 042

REACTIONS (1)
  - Off label use [Unknown]
